FAERS Safety Report 15923082 (Version 1)
Quarter: 2019Q1

REPORT INFORMATION
  Report Type: Spontaneous
  Country: US (occurrence: US)
  Receive Date: 20190115
  Receipt Date: 20190115
  Transmission Date: 20190417
  Serious: Yes (Hospitalization)
  Sender: FDA-Public Use
  Company Number: None

PATIENT
  Sex: Male
  Weight: 74 kg

DRUGS (3)
  1. VELCADE [Concomitant]
     Active Substance: BORTEZOMIB
     Dates: end: 20190107
  2. DEXAMETHASONE. [Suspect]
     Active Substance: DEXAMETHASONE
     Dates: end: 20190108
  3. LENALIDOMIDE [Suspect]
     Active Substance: LENALIDOMIDE
     Dates: end: 20190110

REACTIONS (9)
  - Chest pain [None]
  - Leukocytosis [None]
  - Lung consolidation [None]
  - Dyspnoea [None]
  - Tachypnoea [None]
  - Hypotension [None]
  - Respiratory failure [None]
  - Hypoxia [None]
  - Pneumonia [None]
